FAERS Safety Report 4832117-1 (Version None)
Quarter: 2005Q4

REPORT INFORMATION
  Report Type: 
  Country: None (occurrence: None)
  Receive Date: 20051114
  Receipt Date: 20051026
  Transmission Date: 20060501
  Serious: Yes (Other)
  Sender: FDA-Public Use
  Company Number: US156515

PATIENT
  Age: 51 Year
  Sex: Female

DRUGS (2)
  1. ENBREL [Suspect]
     Indication: PSORIATIC ARTHROPATHY
     Dosage: SC
     Route: 058
     Dates: end: 20050101
  2. BELLADONNA EXTRACT, CAFFEINE PHENOBARBITAL (BELLADONNA EXTRACT, CAFFEI [Concomitant]

REACTIONS (2)
  - CYTOLYTIC HEPATITIS [None]
  - EOSINOPHILIA [None]
